FAERS Safety Report 15641006 (Version 1)
Quarter: 2018Q4

REPORT INFORMATION
  Report Type: Spontaneous
  Country: US (occurrence: US)
  Receive Date: 20181120
  Receipt Date: 20181120
  Transmission Date: 20190205
  Serious: Yes (Other)
  Sender: FDA-Public Use
  Company Number: US-CASPER PHARMA LLC-2018CAS000310

PATIENT
  Age: 13 Month
  Sex: Female
  Weight: 7.5 kg

DRUGS (4)
  1. GLYCOPYRROLATE. [Suspect]
     Active Substance: GLYCOPYRROLATE
     Dosage: 0.014 MILLIGRAM/KILOGRAM
     Route: 042
  2. NEOSTIGMINE. [Suspect]
     Active Substance: NEOSTIGMINE METHYLSULFATE
     Dosage: 0.07 MILLIGRAM/KILOGRAM
     Route: 042
  3. GLYCOPYRROLATE. [Suspect]
     Active Substance: GLYCOPYRROLATE
     Indication: NEUROMUSCULAR BLOCKADE REVERSAL
     Dosage: 0.016 MILLIGRAM/KILOGRAM
     Route: 042
  4. NEOSTIGMINE. [Suspect]
     Active Substance: NEOSTIGMINE METHYLSULFATE
     Indication: NEUROMUSCULAR BLOCKADE REVERSAL
     Dosage: 0.08 MILLIGRAM/KILOGRAM
     Route: 042

REACTIONS (2)
  - Product use in unapproved indication [Unknown]
  - Cardiac arrest [Recovered/Resolved]
